FAERS Safety Report 5047934-5 (Version None)
Quarter: 2006Q3

REPORT INFORMATION
  Report Type: 
  Country: None (occurrence: None)
  Receive Date: 20060710
  Receipt Date: 20060710
  Transmission Date: 20061208
  Serious: Yes (Disabling)
  Sender: FDA-Public Use
  Company Number: None

PATIENT
  Sex: Male
  Weight: 97 kg

DRUGS (6)
  1. ROSIGLITAZONE [Suspect]
     Indication: DIABETES MELLITUS
     Dosage: 4 MG Q AM PO
     Route: 048
     Dates: start: 20030909, end: 20060615
  2. ATENOLOL [Concomitant]
  3. PLENDIL [Concomitant]
  4. LISINOPRIL [Concomitant]
  5. ZOCOR [Concomitant]
  6. WARFARIN SODIUM [Concomitant]

REACTIONS (4)
  - GLAUCOMA [None]
  - MACULAR OEDEMA [None]
  - PSEUDOPHAKIA [None]
  - RETINAL DISORDER [None]
